FAERS Safety Report 7002318-5 (Version None)
Quarter: 2010Q3

REPORT INFORMATION
  Report Type: 
  Country: None (occurrence: None)
  Receive Date: 20100920
  Receipt Date: 20100713
  Transmission Date: 20110219
  Serious: No
  Sender: FDA-Public Use
  Company Number: US-ASTRAZENECA-2010SE27916

PATIENT
  Sex: Female

DRUGS (4)
  1. SEROQUEL [Suspect]
     Indication: PANIC ATTACK
     Dosage: TAKEN AS NEEDED UP TO 7 TIMES PER DAY
     Route: 048
     Dates: start: 20040101
  2. SEROQUEL [Suspect]
     Route: 048
     Dates: start: 20100609, end: 20100610
  3. SEROQUEL [Suspect]
     Route: 048
     Dates: start: 20100610
  4. SEROQUEL [Suspect]
     Route: 048

REACTIONS (8)
  - CONSTIPATION [None]
  - FEELING ABNORMAL [None]
  - INSOMNIA [None]
  - IRRITABILITY [None]
  - NERVOUSNESS [None]
  - PRURITUS GENERALISED [None]
  - THINKING ABNORMAL [None]
  - TREMOR [None]
